FAERS Safety Report 17883363 (Version 1)
Quarter: 2020Q2

REPORT INFORMATION
  Report Type: Report from Study
  Country: IT (occurrence: IT)
  Receive Date: 20200611
  Receipt Date: 20200611
  Transmission Date: 20200714
  Serious: Yes (Hospitalization)
  Sender: FDA-Public Use
  Company Number: IT-TEVA-2020-IT-1246827

PATIENT
  Age: 54 Year
  Sex: Female

DRUGS (6)
  1. LORAZEPAM. [Suspect]
     Active Substance: LORAZEPAM
     Indication: INTENTIONAL SELF-INJURY
     Dosage: 20 DOSAGE FORMS
     Dates: start: 20191223, end: 20191223
  2. MIRTAZAPINE. [Concomitant]
     Active Substance: MIRTAZAPINE
  3. REYATAZ [Concomitant]
     Active Substance: ATAZANAVIR SULFATE
  4. SONGAR [Concomitant]
     Active Substance: TRIAZOLAM
  5. ISENTRESS [Concomitant]
     Active Substance: RALTEGRAVIR POTASSIUM
  6. ESCITALOPRAM [Suspect]
     Active Substance: ESCITALOPRAM OXALATE
     Indication: INTENTIONAL SELF-INJURY
     Dosage: 13 DOSAGE FORMS
     Dates: start: 20191223, end: 20191223

REACTIONS (2)
  - Intentional self-injury [Unknown]
  - Sopor [Unknown]

NARRATIVE: CASE EVENT DATE: 20191223
